FAERS Safety Report 6093921-8 (Version None)
Quarter: 2009Q1

REPORT INFORMATION
  Report Type: 
  Country: None (occurrence: None)
  Receive Date: 20090226
  Receipt Date: 20090217
  Transmission Date: 20090719
  Serious: Yes (Other)
  Sender: FDA-Public Use
  Company Number: A0737556A

PATIENT
  Age: 43 Year
  Sex: Female
  Weight: 95.5 kg

DRUGS (11)
  1. AVANDIA [Suspect]
     Dosage: 4MG PER DAY
     Route: 048
     Dates: start: 20030701, end: 20070701
  2. AVANDAMET [Suspect]
     Route: 048
  3. TOPROL-XL [Concomitant]
  4. TROXIDONE [Concomitant]
     Dates: start: 20060101, end: 20070101
  5. PAXIL [Concomitant]
     Dates: start: 20010101, end: 20030101
  6. GLUCOPHAGE [Concomitant]
  7. LISINOPRIL [Concomitant]
  8. NORVASC [Concomitant]
  9. ADVAIR HFA [Concomitant]
  10. PRILOSEC [Concomitant]
  11. ACTOS [Concomitant]

REACTIONS (2)
  - CARDIAC FAILURE CONGESTIVE [None]
  - MYOCARDIAL INFARCTION [None]
